FAERS Safety Report 8378434-2 (Version None)
Quarter: 2012Q2

REPORT INFORMATION
  Report Type: 
  Country: None (occurrence: None)
  Receive Date: 20120522
  Receipt Date: 20120217
  Transmission Date: 20120825
  Serious: No
  Sender: FDA-Public Use
  Company Number: US-ASTRAZENECA-2012SE11653

PATIENT
  Age: 57 Year
  Sex: Male

DRUGS (3)
  1. VICODIN [Concomitant]
     Indication: PAIN
     Dosage: 5-500 NG AS NEEDED
     Route: 048
     Dates: end: 20090611
  2. ULTRAM [Suspect]
     Route: 048
  3. PRILOSEC [Suspect]
     Route: 048

REACTIONS (3)
  - ARTHRALGIA [None]
  - PAIN [None]
  - ULCER [None]
